FAERS Safety Report 7945213-7 (Version None)
Quarter: 2011Q4

REPORT INFORMATION
  Report Type: 
  Country: None (occurrence: None)
  Receive Date: 20111129
  Receipt Date: 20110330
  Transmission Date: 20120403
  Serious: No
  Sender: FDA-Public Use
  Company Number: US-GLAXOSMITHKLINE-A0920715A

PATIENT
  Age: 53 Year
  Sex: Female
  Weight: 45.9 kg

DRUGS (4)
  1. ALBUTEROL [Concomitant]
  2. CALCIUM [Concomitant]
  3. FLOVENT [Suspect]
     Indication: ASTHMA
     Dosage: 1PUFF TWICE PER DAY
     Route: 055
  4. VERAMYST [Concomitant]

REACTIONS (3)
  - CHEST DISCOMFORT [None]
  - PRODUCT QUALITY ISSUE [None]
  - DYSPHONIA [None]
